FAERS Safety Report 25478720 (Version 1)
Quarter: 2025Q2

REPORT INFORMATION
  Report Type: Spontaneous
  Country: TR (occurrence: TR)
  Receive Date: 20250625
  Receipt Date: 20250625
  Transmission Date: 20250716
  Serious: Yes (Other)
  Sender: AMGEN
  Company Number: TR-AMGEN-TURSP2025121150

PATIENT

DRUGS (2)
  1. ADALIMUMAB [Suspect]
     Active Substance: ADALIMUMAB
     Indication: Uveitis
     Dosage: 40 MILLIGRAM, QWK (WEEKLY)
     Route: 065
  2. ADALIMUMAB [Suspect]
     Active Substance: ADALIMUMAB
     Dosage: 40 MILLIGRAM, Q2WK (BI-WEEKLY)
     Route: 065

REACTIONS (7)
  - Varicella zoster virus infection [Unknown]
  - Gastrointestinal disorder [Unknown]
  - Infection [Unknown]
  - Urinary tract infection [Unknown]
  - Fatigue [Unknown]
  - Influenza like illness [Unknown]
  - Injection site reaction [Unknown]
